FAERS Safety Report 10756508 (Version 1)
Quarter: 2015Q1

REPORT INFORMATION
  Report Type: Spontaneous
  Country: US (occurrence: US)
  Receive Date: 20150202
  Receipt Date: 20150202
  Transmission Date: 20150721
  Serious: No
  Sender: FDA-Public Use
  Company Number: US-GLAXOSMITHKLINE-US2014GSK048890

PATIENT
  Sex: Female

DRUGS (2)
  1. PROMACTA [Suspect]
     Active Substance: ELTROMBOPAG OLAMINE
     Indication: LYMPHOMA
     Dosage: 75 MG, QD
     Dates: start: 20141011
  2. PROMACTA [Suspect]
     Active Substance: ELTROMBOPAG OLAMINE
     Indication: IMMUNE THROMBOCYTOPENIC PURPURA

REACTIONS (1)
  - Drug ineffective [Unknown]
